FAERS Safety Report 5729325-4 (Version None)
Quarter: 2008Q2

REPORT INFORMATION
  Report Type: 
  Country: None (occurrence: None)
  Receive Date: 20080506
  Receipt Date: 20080430
  Transmission Date: 20081010
  Serious: Yes (Life-Threatening, Hospitalization, Disabling, Other)
  Sender: FDA-Public Use
  Company Number: CL-ABBOTT-08P-034-0440259-00

PATIENT
  Sex: Male
  Weight: 45 kg

DRUGS (3)
  1. KALETRA [Suspect]
     Indication: HIV INFECTION
     Route: 048
     Dates: start: 20071201
  2. KALETRA [Suspect]
     Indication: HIV INFECTION
     Dates: start: 20070111, end: 20071201
  3. ATAZANAVIR SULFATE [Concomitant]
     Indication: HIV INFECTION
     Route: 048
     Dates: start: 20070111

REACTIONS (8)
  - ASTHENIA [None]
  - ENCEPHALITIS [None]
  - ENCEPHALITIS VIRAL [None]
  - HEADACHE [None]
  - PHOTOPHOBIA [None]
  - PRODUCTIVE COUGH [None]
  - PYREXIA [None]
  - VOMITING [None]
